FAERS Safety Report 11269953 (Version 1)
Quarter: 2015Q3

REPORT INFORMATION
  Report Type: Spontaneous
  Country: FR (occurrence: FR)
  Receive Date: 20150714
  Receipt Date: 20150714
  Transmission Date: 20151125
  Serious: Yes (Hospitalization, Other)
  Sender: FDA-Public Use
  Company Number: FR-ASTRAZENECA-2015SE67388

PATIENT
  Age: 1013 Month
  Sex: Female

DRUGS (15)
  1. APROVEL [Concomitant]
     Active Substance: IRBESARTAN
  2. MIRTAZAPINE. [Concomitant]
     Active Substance: MIRTAZAPINE
     Dates: start: 20140906, end: 20150327
  3. CEFTRIAXONE. [Concomitant]
     Active Substance: CEFTRIAXONE
     Dates: start: 20150327
  4. INEXIUM [Suspect]
     Active Substance: ESOMEPRAZOLE
     Route: 048
     Dates: start: 201311
  5. MIRTAZAPINE. [Concomitant]
     Active Substance: MIRTAZAPINE
     Dates: end: 201311
  6. METRONIDAZOLE. [Concomitant]
     Active Substance: METRONIDAZOLE
     Dates: start: 20150327
  7. INEXIUM [Suspect]
     Active Substance: ESOMEPRAZOLE
     Route: 048
     Dates: start: 20140906, end: 20150326
  8. INEXIUM [Suspect]
     Active Substance: ESOMEPRAZOLE
     Route: 048
     Dates: start: 2011
  9. EUPANTOL [Suspect]
     Active Substance: PANTOPRAZOLE SODIUM
     Route: 048
     Dates: start: 2013, end: 201311
  10. TAHOR [Concomitant]
     Active Substance: ATORVASTATIN CALCIUM
  11. EUPANTOL [Suspect]
     Active Substance: PANTOPRAZOLE SODIUM
     Dosage: PANTOPRAZOLE, 40 MG DAILY
     Route: 042
     Dates: start: 20150327, end: 20150403
  12. KERLONE [Concomitant]
     Active Substance: BETAXOLOL HYDROCHLORIDE
  13. MIRTAZAPINE. [Concomitant]
     Active Substance: MIRTAZAPINE
     Dates: start: 20150328
  14. KARDEGIC [Concomitant]
     Active Substance: ASPIRIN LYSINE
  15. RISPERDAL [Concomitant]
     Active Substance: RISPERIDONE
     Dates: start: 201111, end: 20150327

REACTIONS (9)
  - Malnutrition [Unknown]
  - Enterocutaneous fistula [Unknown]
  - Dementia [Unknown]
  - Hypomagnesaemia [Recovering/Resolving]
  - Hypocalcaemia [Recovering/Resolving]
  - Diverticulum intestinal [Unknown]
  - Hypokalaemia [Unknown]
  - Small intestinal obstruction [Unknown]
  - Vitamin D deficiency [Unknown]

NARRATIVE: CASE EVENT DATE: 201311
